FAERS Safety Report 11009258 (Version 1)
Quarter: 2015Q2

REPORT INFORMATION
  Report Type: Spontaneous
  Country: US (occurrence: None)
  Receive Date: 20150409
  Receipt Date: 20150409
  Transmission Date: 20150821
  Serious: No
  Sender: FDA-Public Use
  Company Number: None

PATIENT
  Age: 15 Day
  Sex: Female
  Weight: 58.97 kg

DRUGS (1)
  1. COPAXONE [Suspect]
     Active Substance: GLATIRAMER ACETATE
     Indication: MULTIPLE SCLEROSIS
     Dosage: 40 MG, INJECTABLE, THREE TIMES A WEEK
     Dates: start: 20150304

REACTIONS (2)
  - Injection site pain [None]
  - Injection site mass [None]

NARRATIVE: CASE EVENT DATE: 20150305
